FAERS Safety Report 8108110-2 (Version None)
Quarter: 2012Q1

REPORT INFORMATION
  Report Type: 
  Country: None (occurrence: None)
  Receive Date: 20120202
  Receipt Date: 20120119
  Transmission Date: 20120608
  Serious: Yes (Other)
  Sender: FDA-Public Use
  Company Number: CA-JNJFOC-20120113557

PATIENT
  Sex: Female
  Weight: 62 kg

DRUGS (2)
  1. CHANTIX [Concomitant]
     Indication: SMOKING CESSATION THERAPY
  2. REMICADE [Suspect]
     Indication: ANKYLOSING SPONDYLITIS
     Route: 042
     Dates: start: 20110217

REACTIONS (3)
  - IRITIS [None]
  - DIARRHOEA [None]
  - HYPERTENSION [None]
